FAERS Safety Report 6443517-0 (Version None)
Quarter: 2009Q4

REPORT INFORMATION
  Report Type: 
  Country: None (occurrence: None)
  Receive Date: 20091117
  Receipt Date: 20091104
  Transmission Date: 20100525
  Serious: Yes (Disabling)
  Sender: FDA-Public Use
  Company Number: AU-PFIZER INC-2009272037

PATIENT
  Age: 30 Year
  Sex: Male
  Weight: 75 kg

DRUGS (4)
  1. CHAMPIX [Suspect]
     Indication: SMOKING CESSATION THERAPY
     Dosage: 0.5 MG, 2X/DAY (11)
     Route: 048
     Dates: start: 20090825
  2. CHAMPIX [Suspect]
     Dosage: 1 MG, 2X/DAY (42)
     Route: 048
     Dates: end: 20090918
  3. LITHIUM CARBONATE [Concomitant]
     Indication: BIPOLAR II DISORDER
     Dosage: 250 MG, 3X/DAY
     Dates: start: 20081224
  4. MARIJUANA [Concomitant]
     Dosage: UNK
     Dates: end: 20090921

REACTIONS (8)
  - ABNORMAL DREAMS [None]
  - AGITATION [None]
  - EUPHORIC MOOD [None]
  - FEELING DRUNK [None]
  - INSOMNIA [None]
  - NAUSEA [None]
  - RESTLESSNESS [None]
  - VOMITING [None]
